FAERS Safety Report 8451291-1 (Version None)
Quarter: 2012Q2

REPORT INFORMATION
  Report Type: 
  Country: None (occurrence: None)
  Receive Date: 20120620
  Receipt Date: 20120227
  Transmission Date: 20120825
  Serious: No
  Sender: FDA-Public Use
  Company Number: US-VERTEX PHARMACEUTICALS INC.-AE-2012-002352

PATIENT
  Sex: Female
  Weight: 97.156 kg

DRUGS (3)
  1. INCIVEK [Suspect]
     Indication: HEPATITIS C
     Route: 048
     Dates: start: 20111201
  2. RIBAVIRIN [Concomitant]
     Indication: HEPATITIS C
     Route: 048
     Dates: start: 20111201
  3. PEGASYS [Concomitant]
     Indication: HEPATITIS C
     Route: 058
     Dates: start: 20111201

REACTIONS (5)
  - VULVOVAGINAL PRURITUS [None]
  - PROCTALGIA [None]
  - HAEMATOCHEZIA [None]
  - HAEMORRHOIDS [None]
  - ANAL PRURITUS [None]
